FAERS Safety Report 13863630 (Version 3)
Quarter: 2017Q3

REPORT INFORMATION
  Report Type: Spontaneous
  Country: JP (occurrence: JP)
  Receive Date: 20170814
  Receipt Date: 20170919
  Transmission Date: 20171127
  Serious: No
  Sender: FDA-Public Use
  Company Number: JP-ELI_LILLY_AND_COMPANY-JP201708004074

PATIENT
  Age: 80 Year
  Sex: Male

DRUGS (8)
  1. NAFTOPIDIL [Concomitant]
     Active Substance: NAFTOPIDIL
  2. DIOVAN [Concomitant]
     Active Substance: VALSARTAN
     Dosage: UNK
     Route: 048
  3. DEPAS [Concomitant]
     Active Substance: ETIZOLAM
  4. ZALUTIA [Suspect]
     Active Substance: TADALAFIL
     Indication: BENIGN PROSTATIC HYPERPLASIA
     Dosage: 5 MG, DAILY
     Route: 048
     Dates: start: 20170727, end: 20170807
  5. BICALUTAMIDE. [Concomitant]
     Active Substance: BICALUTAMIDE
  6. AMLODIPINE [Concomitant]
     Active Substance: AMLODIPINE BESYLATE
     Dosage: UNK
     Route: 048
  7. CELECOX [Concomitant]
     Active Substance: CELECOXIB
     Dosage: UNK
     Route: 048
  8. REBAMIPIDE [Concomitant]
     Active Substance: REBAMIPIDE

REACTIONS (1)
  - Vision blurred [Unknown]

NARRATIVE: CASE EVENT DATE: 20170804
